FAERS Safety Report 9063741 (Version 2)
Quarter: 2014Q3

REPORT INFORMATION
  Report Type: Report from Study
  Country: US (occurrence: US)
  Receive Date: 20130213
  Receipt Date: 20140923
  Transmission Date: 20150326
  Serious: Yes (Death, Hospitalization, Other)
  Sender: FDA-Public Use
  Company Number: US-ASTELLAS-2013US001554

PATIENT
  Age: 67 Year
  Sex: Female
  Weight: 47 kg

DRUGS (3)
  1. ERLOTINIB [Suspect]
     Active Substance: ERLOTINIB
     Indication: MALIGNANT RESPIRATORY TRACT NEOPLASM
     Route: 048
     Dates: start: 20050222, end: 20050506
  2. FLAGYL [Concomitant]
     Active Substance: METRONIDAZOLE\METRONIDAZOLE HYDROCHLORIDE
     Indication: DIARRHOEA
     Route: 048
  3. ERLOTINIB [Suspect]
     Active Substance: ERLOTINIB
     Indication: NON-SMALL CELL LUNG CANCER

REACTIONS (13)
  - Hypotension [Unknown]
  - Drug intolerance [Unknown]
  - Cerebrovascular accident [Fatal]
  - Clostridium difficile infection [Unknown]
  - Asthenia [Unknown]
  - Fatigue [Unknown]
  - Diarrhoea [Unknown]
  - Neck pain [Unknown]
  - Rash [Recovering/Resolving]
  - Decreased appetite [Unknown]
  - Pruritus [Unknown]
  - Malignant neoplasm progression [Unknown]
  - Urinary tract infection [Unknown]

NARRATIVE: CASE EVENT DATE: 200504
